FAERS Safety Report 11413713 (Version 1)
Quarter: 2015Q3

REPORT INFORMATION
  Report Type: Spontaneous
  Country: US (occurrence: US)
  Receive Date: 20150824
  Receipt Date: 20150824
  Transmission Date: 20151125
  Serious: Yes (Hospitalization, Other)
  Sender: FDA-Public Use
  Company Number: US-PFIZER INC-2015277340

PATIENT
  Age: 14 Year
  Sex: Male
  Weight: 40 kg

DRUGS (4)
  1. GABAPENTIN. [Suspect]
     Active Substance: GABAPENTIN
     Dosage: 100 MG, DAILY
     Dates: start: 2015
  2. GABAPENTIN. [Interacting]
     Active Substance: GABAPENTIN
     Dosage: 200 MG, 2X/DAY, IN THE MORNING AND AT NIGHT
     Dates: start: 2015
  3. BANZEL [Interacting]
     Active Substance: RUFINAMIDE
  4. ONFI [Interacting]
     Active Substance: CLOBAZAM

REACTIONS (15)
  - Constipation [Recovering/Resolving]
  - Coordination abnormal [Recovering/Resolving]
  - Drug interaction [Unknown]
  - Onychophagia [Recovering/Resolving]
  - Trichotillomania [Recovering/Resolving]
  - Self injurious behaviour [Recovering/Resolving]
  - Dizziness [Recovering/Resolving]
  - Anxiety [Recovering/Resolving]
  - Oliguria [Recovering/Resolving]
  - Decreased appetite [Recovering/Resolving]
  - Vomiting [Recovering/Resolving]
  - Headache [Recovering/Resolving]
  - Heart rate irregular [Unknown]
  - Abasia [Recovering/Resolving]
  - Hypersomnia [Recovering/Resolving]

NARRATIVE: CASE EVENT DATE: 20150527
